FAERS Safety Report 11682070 (Version 2)
Quarter: 2015Q4

REPORT INFORMATION
  Report Type: Report from Study
  Country: US (occurrence: US)
  Receive Date: 20151029
  Receipt Date: 20151210
  Transmission Date: 20160304
  Serious: Yes (Other)
  Sender: FDA-Public Use
  Company Number: US-AMGEN-USASP2015111078

PATIENT
  Age: 60 Year
  Sex: Female

DRUGS (1)
  1. ENBREL [Suspect]
     Active Substance: ETANERCEPT
     Indication: RHEUMATOID ARTHRITIS
     Dosage: 50 MG, QWK
     Route: 065
     Dates: start: 1998

REACTIONS (7)
  - Memory impairment [Not Recovered/Not Resolved]
  - Wrong technique in product usage process [Unknown]
  - Pain [Unknown]
  - Subdural haematoma [Unknown]
  - Cough [Unknown]
  - Drug ineffective [Unknown]
  - Drug dose omission [Unknown]

NARRATIVE: CASE EVENT DATE: 2012
